FAERS Safety Report 7321898-3 (Version None)
Quarter: 2011Q1

REPORT INFORMATION
  Report Type: 
  Country: None (occurrence: None)
  Receive Date: 20110216
  Receipt Date: 20110202
  Transmission Date: 20110831
  Serious: Yes (Other)
  Sender: FDA-Public Use
  Company Number: 2011000547

PATIENT
  Age: 72 Year
  Sex: Male

DRUGS (1)
  1. TARCEVA [Suspect]
     Indication: LUNG NEOPLASM MALIGNANT
     Dosage: 150 MG DAILY, ORAL
     Route: 048
     Dates: start: 20100524

REACTIONS (4)
  - DIZZINESS [None]
  - ONYCHOCLASIS [None]
  - VISUAL IMPAIRMENT [None]
  - FATIGUE [None]
